FAERS Safety Report 8437271-0 (Version None)
Quarter: 2012Q2

REPORT INFORMATION
  Report Type: 
  Country: None (occurrence: None)
  Receive Date: 20120614
  Receipt Date: 20120612
  Transmission Date: 20120825
  Serious: No
  Sender: FDA-Public Use
  Company Number: JP-PFIZER INC-2012115098

PATIENT
  Age: 65 Year
  Sex: Male

DRUGS (1)
  1. CADUET [Suspect]
     Dosage: 5MG/ 10 MG

REACTIONS (1)
  - BLEEDING TIME PROLONGED [None]
